FAERS Safety Report 6185661-1 (Version None)
Quarter: 2009Q2

REPORT INFORMATION
  Report Type: 
  Country: None (occurrence: None)
  Receive Date: 20090511
  Receipt Date: 20090501
  Transmission Date: 20091009
  Serious: Yes (Hospitalization)
  Sender: FDA-Public Use
  Company Number: PHHO2009US05645

PATIENT
  Sex: Male
  Weight: 97 kg

DRUGS (3)
  1. RAD 666 RAD+TAB [Suspect]
     Indication: LIVER TRANSPLANT
     Dosage: 4 MG/DAY
     Route: 048
     Dates: start: 20090305
  2. TACROLIMUS COMP-TAC+ [Suspect]
     Indication: LIVER TRANSPLANT
     Dosage: 4 MG, BID
     Route: 048
     Dates: start: 20090130
  3. TACROLIMUS COMP-TAC+ [Suspect]
     Dosage: 2 MG, BID
     Route: 048
     Dates: start: 20090430

REACTIONS (1)
  - NEPHROPATHY TOXIC [None]
